FAERS Safety Report 5722844-6 (Version None)
Quarter: 2008Q2

REPORT INFORMATION
  Report Type: 
  Country: None (occurrence: None)
  Receive Date: 20080429
  Receipt Date: 20080204
  Transmission Date: 20081010
  Serious: No
  Sender: FDA-Public Use
  Company Number: US-ASTRAZENECA-2008UW02445

PATIENT
  Age: 81 Year

DRUGS (6)
  1. NEXIUM [Suspect]
     Indication: ABDOMINAL PAIN UPPER
     Route: 048
     Dates: start: 20070601
  2. DIOVAN [Concomitant]
  3. LIPITOR [Concomitant]
  4. HYTRIN [Concomitant]
  5. PROSCAR [Concomitant]
  6. ASPIRIN [Concomitant]

REACTIONS (2)
  - INJECTION SITE HAEMORRHAGE [None]
  - RASH MACULO-PAPULAR [None]
